FAERS Safety Report 13714186 (Version 1)
Quarter: 2017Q3

REPORT INFORMATION
  Report Type: Spontaneous
  Country: US (occurrence: US)
  Receive Date: 20170704
  Receipt Date: 20170704
  Transmission Date: 20171127
  Serious: Yes (Other)
  Sender: FDA-Public Use
  Company Number: US-ELI_LILLY_AND_COMPANY-US201707000343

PATIENT
  Age: 60 Year
  Sex: Female

DRUGS (1)
  1. LARTRUVO [Suspect]
     Active Substance: OLARATUMAB
     Indication: SOFT TISSUE SARCOMA
     Dosage: 20 MG/KG, UNKNOWN
     Route: 065
     Dates: start: 20170622, end: 20170622

REACTIONS (1)
  - Infusion site reaction [Recovered/Resolved]
